FAERS Safety Report 20912720 (Version 1)
Quarter: 2022Q2

REPORT INFORMATION
  Report Type: Report from Study
  Country: NO (occurrence: NO)
  Receive Date: 20220603
  Receipt Date: 20220603
  Transmission Date: 20220721
  Serious: Yes (Life-Threatening, Other)
  Sender: FDA-Public Use
  Company Number: NO-ASTELLAS-2022US006839

PATIENT
  Age: 69 Year
  Sex: Male

DRUGS (8)
  1. VANCOMYCIN [Suspect]
     Active Substance: VANCOMYCIN
     Indication: Pyrexia
     Dosage: 2 GRAM, QD (2G)
     Route: 065
     Dates: start: 20220212, end: 20220217
  2. GILTERITINIB [Suspect]
     Active Substance: GILTERITINIB
     Indication: Acute myeloid leukaemia
     Dosage: 120 MILLIGRAM, QD (120 MG, QD)
     Route: 065
     Dates: start: 20220117, end: 20220130
  3. DAUNORUBICIN [Suspect]
     Active Substance: DAUNORUBICIN
     Indication: Acute myeloid leukaemia
     Dosage: 108.6 MILLIGRAM, QD (108.6 MG)
     Route: 065
     Dates: start: 20220110, end: 20220112
  4. CYTARABINE [Suspect]
     Active Substance: CYTARABINE
     Indication: Acute myeloid leukaemia
     Dosage: 362 MILLIGRAM, QD (362 MG)
     Route: 065
     Dates: start: 20220110, end: 20220116
  5. BACTRIM [Suspect]
     Active Substance: SULFAMETHOXAZOLE\TRIMETHOPRIM
     Indication: Pneumocystis jirovecii pneumonia
     Dosage: 1280 MG, ONCE DAILY (ALSO REPORTED AS 6400MG DAILY)
     Route: 065
     Dates: start: 20220205, end: 20220207
  6. PIPERACILLIN SODIUM\TAZOBACTAM SODIUM [Suspect]
     Active Substance: PIPERACILLIN SODIUM\TAZOBACTAM SODIUM
     Indication: Atypical pneumonia
     Dosage: 12 GRAM, QD (12 G)
     Route: 065
     Dates: start: 20220207, end: 20220223
  7. AMPHOTERICIN B [Suspect]
     Active Substance: AMPHOTERICIN B
     Indication: Aspergillus infection
     Dosage: 350 MILLIGRAM, QD
     Route: 065
     Dates: start: 20220210, end: 20220215
  8. MEROPENEM [Suspect]
     Active Substance: MEROPENEM
     Indication: Pyrexia
     Dosage: 3 GRAM, QD (3 G)
     Route: 065
     Dates: start: 20220125, end: 20220217

REACTIONS (1)
  - Haemophagocytic lymphohistiocytosis [Not Recovered/Not Resolved]

NARRATIVE: CASE EVENT DATE: 20220221
